FAERS Safety Report 12571312 (Version 1)
Quarter: 2016Q3

REPORT INFORMATION
  Report Type: Report from Study
  Country: IL (occurrence: IL)
  Receive Date: 20160719
  Receipt Date: 20160719
  Transmission Date: 20161109
  Serious: Yes (Other)
  Sender: FDA-Public Use
  Company Number: IL-BAXTER-2016BAX038783

PATIENT
  Age: 31 Year
  Sex: Female

DRUGS (6)
  1. DOXORUBICIN [Suspect]
     Active Substance: DOXORUBICIN
     Indication: OESTROGEN RECEPTOR POSITIVE BREAST CANCER
  2. ENDOXAN-1G [Suspect]
     Active Substance: CYCLOPHOSPHAMIDE
     Indication: BREAST CANCER STAGE III
     Route: 065
  3. PACLITAXEL. [Suspect]
     Active Substance: PACLITAXEL
     Indication: BREAST CANCER STAGE III
     Route: 065
  4. ENDOXAN-1G [Suspect]
     Active Substance: CYCLOPHOSPHAMIDE
     Indication: OESTROGEN RECEPTOR POSITIVE BREAST CANCER
  5. PACLITAXEL. [Suspect]
     Active Substance: PACLITAXEL
     Indication: OESTROGEN RECEPTOR POSITIVE BREAST CANCER
  6. DOXORUBICIN [Suspect]
     Active Substance: DOXORUBICIN
     Indication: BREAST CANCER STAGE III
     Route: 065

REACTIONS (2)
  - Ovarian failure [Unknown]
  - Vascular injury [Unknown]
